FAERS Safety Report 25236677 (Version 1)
Quarter: 2025Q2

REPORT INFORMATION
  Report Type: Spontaneous
  Country: US (occurrence: US)
  Receive Date: 20250424
  Receipt Date: 20250424
  Transmission Date: 20250716
  Serious: No
  Sender: ALEXION PHARMACEUTICALS
  Company Number: US-AstraZeneca-CH-00855815A

PATIENT

DRUGS (1)
  1. FASENRA [Suspect]
     Active Substance: BENRALIZUMAB
     Dosage: UNK, Q8W
     Route: 065

REACTIONS (7)
  - Gait disturbance [Unknown]
  - Arthralgia [Unknown]
  - Influenza like illness [Unknown]
  - Sneezing [Not Recovered/Not Resolved]
  - Rhinorrhoea [Not Recovered/Not Resolved]
  - Dry mouth [Unknown]
  - Insomnia [Unknown]
